FAERS Safety Report 4778211-5 (Version None)
Quarter: 2005Q3

REPORT INFORMATION
  Report Type: 
  Country: None (occurrence: None)
  Receive Date: 20050926
  Receipt Date: 20030213
  Transmission Date: 20060218
  Serious: Yes (Other)
  Sender: FDA-Public Use
  Company Number: US-BRISTOL-MYERS SQUIBB COMPANY-12187712

PATIENT
  Age: 39 Year
  Sex: Female

DRUGS (1)
  1. STADOL [Suspect]
     Indication: MIGRAINE
     Dosage: 21 BOTTLES
     Dates: start: 19970710, end: 19970930

REACTIONS (1)
  - DEPENDENCE [None]
